FAERS Safety Report 18353684 (Version 1)
Quarter: 2020Q4

REPORT INFORMATION
  Report Type: Spontaneous
  Country: US (occurrence: US)
  Receive Date: 20201006
  Receipt Date: 20201006
  Transmission Date: 20210114
  Serious: No
  Sender: FDA-Public Use
  Company Number: US-ROCHE-2407417

PATIENT
  Sex: Male

DRUGS (2)
  1. ZELBORAF [Suspect]
     Active Substance: VEMURAFENIB
     Indication: HAIRY CELL LEUKAEMIA
     Dosage: 2 TABLETS (240 MG) TWICE A DAY
     Route: 048
     Dates: start: 201904
  2. ZELBORAF [Suspect]
     Active Substance: VEMURAFENIB
     Dosage: CURRENTLY ON 1 TABLET (ONCE A DAY) IN MORNING.
     Route: 048
     Dates: start: 201905

REACTIONS (1)
  - Blood count abnormal [Unknown]
